FAERS Safety Report 17528478 (Version 2)
Quarter: 2020Q2

REPORT INFORMATION
  Report Type: Spontaneous
  Country: FR (occurrence: FR)
  Receive Date: 20200312
  Receipt Date: 20200416
  Transmission Date: 20200713
  Serious: Yes (Hospitalization, Other)
  Sender: FDA-Public Use
  Company Number: FR-AUROBINDO-AUR-APL-2020-012190

PATIENT
  Age: 35 Year
  Sex: Female

DRUGS (2)
  1. LOXAPAC [Suspect]
     Active Substance: LOXAPINE
     Indication: DELUSION
     Dosage: 75 MILLIGRAM, ONCE A DAY (25X3MG/D)
     Route: 065
  2. ARIPIPRAZOLE TABLETS [Suspect]
     Active Substance: ARIPIPRAZOLE
     Indication: DELUSION
     Dosage: 5 MILLIGRAM, ONCE A DAY
     Route: 048

REACTIONS (6)
  - Dystonia [Recovered/Resolved]
  - Product use in unapproved indication [Unknown]
  - Dyspnoea [Recovered/Resolved]
  - Dysphagia [Recovered/Resolved]
  - Swollen tongue [Recovered/Resolved]
  - Cyanosis central [Recovered/Resolved]
